FAERS Safety Report 18259861 (Version 1)
Quarter: 2020Q3

REPORT INFORMATION
  Report Type: Spontaneous
  Country: CA (occurrence: CA)
  Receive Date: 20200912
  Receipt Date: 20200912
  Transmission Date: 20201103
  Serious: Yes (Hospitalization, Other)
  Sender: FDA-Public Use
  Company Number: CA-AMGEN-CANSP2020144035

PATIENT
  Age: 25 Year
  Sex: Female

DRUGS (6)
  1. ARANESP [Suspect]
     Active Substance: DARBEPOETIN ALFA
     Indication: SICKLE CELL DISEASE
     Dosage: 150 MICROGRAM, 2 TIMES/WK
     Route: 065
  2. HYDROXYUREA. [Concomitant]
     Active Substance: HYDROXYUREA
     Indication: SICKLE CELL DISEASE
  3. METHYLPREDNISOLONE. [Concomitant]
     Active Substance: METHYLPREDNISOLONE
     Indication: PROPHYLAXIS
     Dosage: 250 MILLIGRAM
     Route: 042
  4. RITUXIMAB. [Concomitant]
     Active Substance: RITUXIMAB
     Indication: PROPHYLAXIS
     Dosage: 500 MILLIGRAM, Q2WK
     Route: 042
  5. ECULIZUMAB [Concomitant]
     Active Substance: ECULIZUMAB
     Indication: PROPHYLAXIS
  6. IMMUNOGLOBULIN I.V [Concomitant]
     Active Substance: HUMAN IMMUNOGLOBULIN G
     Indication: PROPHYLAXIS
     Dosage: 0.4 GRAM PER KILOGRAM

REACTIONS (8)
  - Uterine atony [Unknown]
  - Premature delivery [Unknown]
  - Platelet count decreased [Recovered/Resolved]
  - Maternal exposure during pregnancy [Unknown]
  - Off label use [Unknown]
  - Foetal growth restriction [Unknown]
  - Acute chest syndrome [Recovered/Resolved]
  - Anaemia [Recovered/Resolved]
